FAERS Safety Report 8427304-X (Version None)
Quarter: 2012Q2

REPORT INFORMATION
  Report Type: 
  Country: None (occurrence: None)
  Receive Date: 20120611
  Receipt Date: 20120531
  Transmission Date: 20120825
  Serious: Yes (Other)
  Sender: FDA-Public Use
  Company Number: JP-ASTRAZENECA-2012SE37053

PATIENT
  Age: 12 Year
  Sex: Male
  Weight: 62 kg

DRUGS (1)
  1. SYMBICORT [Suspect]
     Indication: ASTHMA
     Dosage: 1 DOSAGE FORM, EVERY DAY
     Route: 055
     Dates: start: 20120517, end: 20120517

REACTIONS (1)
  - ERYTHEMA INFECTIOSUM [None]
